FAERS Safety Report 4713134-9 (Version None)
Quarter: 2005Q3

REPORT INFORMATION
  Report Type: 
  Country: None (occurrence: None)
  Receive Date: 20050712
  Receipt Date: 20050712
  Transmission Date: 20060218
  Serious: Yes (Other)
  Sender: FDA-Public Use
  Company Number: None

PATIENT
  Age: 45 Year
  Sex: Female
  Weight: 77.1115 kg

DRUGS (1)
  1. CELEBREX [Suspect]
     Indication: MUSCLE DISORDER
     Dosage: 100 MG TWICE A DAY
     Dates: start: 20050317, end: 20050408

REACTIONS (6)
  - CHEST PAIN [None]
  - COUGH [None]
  - DIZZINESS [None]
  - ECONOMIC PROBLEM [None]
  - ORAL MUCOSAL DISORDER [None]
  - RESPIRATORY DISORDER [None]
